FAERS Safety Report 5147493-2 (Version None)
Quarter: 2006Q4

REPORT INFORMATION
  Report Type: 
  Country: None (occurrence: None)
  Receive Date: 20061109
  Receipt Date: 20061030
  Transmission Date: 20070319
  Serious: Yes (Hospitalization)
  Sender: FDA-Public Use
  Company Number: US-ABBOTT-06P-163-0348427-00

PATIENT
  Sex: Male

DRUGS (2)
  1. GENGRAF [Suspect]
     Indication: HEART TRANSPLANT
     Route: 048
     Dates: start: 19980101, end: 20061001
  2. GENGRAF [Suspect]
     Route: 048
     Dates: start: 20061001

REACTIONS (3)
  - CORONARY ARTERY DISEASE [None]
  - INFECTION [None]
  - NIGHT SWEATS [None]
